FAERS Safety Report 8346732-4 (Version None)
Quarter: 2012Q2

REPORT INFORMATION
  Report Type: 
  Country: None (occurrence: None)
  Receive Date: 20120509
  Receipt Date: 20120427
  Transmission Date: 20120825
  Serious: Yes (Hospitalization, Other)
  Sender: FDA-Public Use
  Company Number: US-NOVOPROD-350564

PATIENT
  Age: 66 Year
  Sex: Female

DRUGS (5)
  1. LANTUS [Suspect]
     Indication: TYPE 2 DIABETES MELLITUS
     Dosage: 60 IU, UNK
     Route: 058
  2. NOVOLOG [Suspect]
     Indication: TYPE 2 DIABETES MELLITUS
     Dosage: 25 IU, UNK
     Route: 058
  3. SAXAGLIPTIN [Suspect]
     Indication: TYPE 2 DIABETES MELLITUS
     Dosage: UNK
     Dates: start: 20101013, end: 20101122
  4. SAXAGLIPTIN [Suspect]
     Dosage: UNK
     Dates: start: 20101210
  5. NIACIN [Concomitant]
     Indication: PRODUCT USED FOR UNKNOWN INDICATION

REACTIONS (6)
  - INCORRECT DOSE ADMINISTERED [None]
  - PULMONARY GRANULOMA [None]
  - OEDEMA PERIPHERAL [None]
  - DYSPNOEA [None]
  - TREATMENT NONCOMPLIANCE [None]
  - CARDIAC FAILURE CONGESTIVE [None]
